FAERS Safety Report 17669402 (Version 1)
Quarter: 2020Q2

REPORT INFORMATION
  Report Type: Spontaneous
  Country: DK (occurrence: DK)
  Receive Date: 20200415
  Receipt Date: 20200415
  Transmission Date: 20200713
  Serious: Yes (Other)
  Sender: FDA-Public Use
  Company Number: DK-TEVA-2020-DK-1223047

PATIENT
  Age: 51 Year
  Sex: Female

DRUGS (7)
  1. PREDNISOLONE. [Suspect]
     Active Substance: PREDNISOLONE
     Indication: ASTHMA
     Dosage: DOSE AND STRENGTH UNKNOWN.
  2. BRICANYL [Concomitant]
     Active Substance: TERBUTALINE SULFATE
     Indication: ASTHMA
     Dosage: DOSE WAS VARIED .. STRENGTH: 0.5MG / DOSE
     Route: 055
  3. DUORESP SPIROMAX [Concomitant]
     Active Substance: BUDESONIDE\FORMOTEROL
     Indication: ASTHMA
     Dosage: DOSAGE: 2 SUCKS MORNING AND EVENING. STRENGTH: 320/9 MICROGRAMS
     Route: 055
     Dates: start: 2011
  4. HJERTEMAGNYL [Concomitant]
     Indication: THROMBOSIS PROPHYLAXIS
     Dosage: STRENGTH: 75 MG
     Route: 048
  5. SPIROCORT [Concomitant]
     Active Substance: BUDESONIDE
     Indication: ASTHMA
     Dosage: DOSE AND STRENGTH UNKNOWN
     Route: 055
  6. SINGULAIR [Concomitant]
     Active Substance: MONTELUKAST SODIUM
     Indication: ASTHMA
     Dosage: THE DOSE HAS VARIED. STRENGTH: 10 MG
     Route: 048
  7. HYDROCORTISONE. [Suspect]
     Active Substance: HYDROCORTISONE
     Indication: ADDISON^S DISEASE
     Dosage: THE DOSE AND POTENCY HAVE VARIED. IN OCTOBER 2017, SHE WAS AT 120MG, WHERE THE STEP-DOWN BEGAN
     Route: 048
     Dates: start: 201411

REACTIONS (18)
  - Gait disturbance [Not Recovered/Not Resolved]
  - Cushingoid [Unknown]
  - Nerve injury [Not Recovered/Not Resolved]
  - Dysstasia [Not Recovered/Not Resolved]
  - Disturbance in attention [Not Recovered/Not Resolved]
  - Headache [Not Recovered/Not Resolved]
  - Fatigue [Not Recovered/Not Resolved]
  - Osteoporosis [Unknown]
  - Eye disorder [Unknown]
  - Balance disorder [Not Recovered/Not Resolved]
  - Osteopenia [Unknown]
  - Osteomyelitis [Not Recovered/Not Resolved]
  - Bone pain [Not Recovered/Not Resolved]
  - Oedema [Not Recovered/Not Resolved]
  - Speech disorder [Not Recovered/Not Resolved]
  - Decreased immune responsiveness [Not Recovered/Not Resolved]
  - Joint dislocation [Not Recovered/Not Resolved]
  - Memory impairment [Not Recovered/Not Resolved]

NARRATIVE: CASE EVENT DATE: 201506
